FAERS Safety Report 12740945 (Version 1)
Quarter: 2016Q3

REPORT INFORMATION
  Report Type: Spontaneous
  Country: IN (occurrence: IN)
  Receive Date: 20160914
  Receipt Date: 20160914
  Transmission Date: 20161109
  Serious: No
  Sender: FDA-Public Use
  Company Number: IN-LUPIN PHARMACEUTICALS INC.-E2B_00005986

PATIENT
  Age: 29 Year
  Sex: Male

DRUGS (6)
  1. R-CIN [Suspect]
     Active Substance: RIFAMPIN
     Indication: TUBERCULOSIS
     Route: 048
     Dates: start: 20160805
  2. PYZINA 500 [Concomitant]
     Indication: TUBERCULOSIS
     Route: 048
     Dates: start: 20160805
  3. GINDOXIME [Concomitant]
     Indication: TUBERCULOSIS
     Route: 048
     Dates: start: 20160805
  4. PYZINA 750 [Concomitant]
     Indication: TUBERCULOSIS
     Route: 048
     Dates: start: 20160805
  5. SOLONEX [Concomitant]
     Active Substance: ISONIAZID
     Indication: TUBERCULOSIS
     Route: 048
     Dates: start: 20160805
  6. COMBUTOL 800 [Concomitant]
     Indication: TUBERCULOSIS
     Route: 048
     Dates: start: 20160805

REACTIONS (1)
  - Chromaturia [Recovering/Resolving]

NARRATIVE: CASE EVENT DATE: 20160805
